FAERS Safety Report 23078515 (Version 3)
Quarter: 2023Q4

REPORT INFORMATION
  Report Type: Spontaneous
  Country: JP (occurrence: JP)
  Receive Date: 20231018
  Receipt Date: 20231201
  Transmission Date: 20240110
  Serious: Yes (Hospitalization)
  Sender: FDA-Public Use
  Company Number: JP-MYE-2023M1105145AA

PATIENT
  Age: 3 Decade
  Sex: Female

DRUGS (11)
  1. EFFEXOR XR [Suspect]
     Active Substance: VENLAFAXINE HYDROCHLORIDE
     Indication: Depression
     Dosage: 1050 MILLIGRAM
     Route: 048
  2. EFFEXOR XR [Suspect]
     Active Substance: VENLAFAXINE HYDROCHLORIDE
     Dosage: 1050 MILLIGRAM
     Route: 048
  3. OLANZAPINE [Suspect]
     Active Substance: OLANZAPINE
     Indication: Depression
     Dosage: 140 MILLIGRAM
     Route: 048
  4. OLANZAPINE [Suspect]
     Active Substance: OLANZAPINE
     Dosage: 140 MILLIGRAM
     Route: 048
  5. VALPROATE SODIUM [Suspect]
     Active Substance: VALPROATE SODIUM
     Indication: Depression
     Dosage: 10800 MILLIGRAM
     Route: 048
  6. VALPROATE SODIUM [Suspect]
     Active Substance: VALPROATE SODIUM
     Dosage: 10800 MILLIGRAM
     Route: 048
  7. RAMELTEON [Suspect]
     Active Substance: RAMELTEON
     Indication: Depression
     Dosage: 112 MILLIGRAM
     Route: 048
  8. RAMELTEON [Suspect]
     Active Substance: RAMELTEON
     Dosage: 112 MILLIGRAM
     Route: 048
  9. MIRTAZAPINE [Suspect]
     Active Substance: MIRTAZAPINE
     Indication: Depression
     Dosage: 405 MILLIGRAM
     Route: 048
  10. MIRTAZAPINE [Suspect]
     Active Substance: MIRTAZAPINE
     Dosage: 405 MILLIGRAM
     Route: 048
  11. METHYLCOBALAMIN [Suspect]
     Active Substance: METHYLCOBALAMIN
     Indication: Product used for unknown indication
     Dosage: 4000 MICROGRAM
     Route: 048

REACTIONS (4)
  - Hypoglycaemia [Recovered/Resolved]
  - Serotonin syndrome [Unknown]
  - Depressed level of consciousness [Recovered/Resolved]
  - Overdose [Unknown]
